FAERS Safety Report 20223267 (Version 3)
Quarter: 2022Q2

REPORT INFORMATION
  Report Type: Report from Study
  Country: TH (occurrence: TH)
  Receive Date: 20211223
  Receipt Date: 20220405
  Transmission Date: 20220721
  Serious: Yes (Hospitalization)
  Sender: FDA-Public Use
  Company Number: TH-009507513-2112THA007361

PATIENT
  Age: 76 Year
  Sex: Male

DRUGS (3)
  1. PEMBROLIZUMAB [Suspect]
     Active Substance: PEMBROLIZUMAB
     Indication: Squamous cell carcinoma of lung
     Dosage: 200 MG / IV/3 WEEKS.
     Route: 042
     Dates: start: 20211202, end: 20211202
  2. PEMBROLIZUMAB [Suspect]
     Active Substance: PEMBROLIZUMAB
     Dosage: 200 MG / IV/3 WEEKS.
     Route: 042
     Dates: start: 20220209, end: 20220209
  3. PEMBROLIZUMAB [Suspect]
     Active Substance: PEMBROLIZUMAB
     Dosage: 200 MG / IV/3 WEEKS.
     Route: 042
     Dates: start: 20220310

REACTIONS (5)
  - Wound infection [Not Recovered/Not Resolved]
  - White blood cell count decreased [Recovered/Resolved]
  - Arthropod bite [Unknown]
  - Inappropriate schedule of product administration [Unknown]
  - Inappropriate schedule of product administration [Unknown]

NARRATIVE: CASE EVENT DATE: 20210101
